FAERS Safety Report 16662627 (Version 2)
Quarter: 2020Q1

REPORT INFORMATION
  Report Type: Report from Study
  Country: US (occurrence: US)
  Receive Date: 20190802
  Receipt Date: 20200129
  Transmission Date: 20200409
  Serious: No
  Sender: FDA-Public Use
  Company Number: US-EXELIXIS-CABO-19018909

PATIENT
  Sex: Male

DRUGS (23)
  1. AMITRIPTYLENE [Concomitant]
     Active Substance: AMITRIPTYLINE
  2. KETOCONAZOL [Concomitant]
     Active Substance: KETOCONAZOLE
  3. VITAMIN D3 [Concomitant]
     Active Substance: CHOLECALCIFEROL
  4. TUMS [Concomitant]
     Active Substance: CALCIUM CARBONATE
  5. CABOMETYX [Suspect]
     Active Substance: CABOZANTINIB S-MALATE
     Indication: RENAL CANCER
     Dosage: 20 MG, QD (1 TABLET OF 20 MG FOR 1 WEEK)
     Route: 048
     Dates: start: 20180703, end: 201807
  6. CABOMETYX [Suspect]
     Active Substance: CABOZANTINIB S-MALATE
     Dosage: 60 MG, QD
     Route: 048
  7. PANTOPRAZOLE [Concomitant]
     Active Substance: PANTOPRAZOLE
  8. FOLIC ACID. [Concomitant]
     Active Substance: FOLIC ACID
  9. FERROUS GLUCONATE [Concomitant]
     Active Substance: FERROUS GLUCONATE
  10. TRIAMCINOLONE [Concomitant]
     Active Substance: TRIAMCINOLONE
  11. NOVOLOG [Concomitant]
     Active Substance: INSULIN ASPART
  12. ASPIRIN. [Concomitant]
     Active Substance: ASPIRIN
  13. GABAPENTIN. [Concomitant]
     Active Substance: GABAPENTIN
  14. ZINC. [Concomitant]
     Active Substance: ZINC
  15. CABOMETYX [Suspect]
     Active Substance: CABOZANTINIB S-MALATE
     Dosage: 60 MG, QD (3 TABLETS OF 20 MG)
     Route: 048
     Dates: start: 201807
  16. CABOMETYX [Suspect]
     Active Substance: CABOZANTINIB S-MALATE
     Dosage: UNK, DECREASED DOSE
  17. FAMOTIDINE. [Concomitant]
     Active Substance: FAMOTIDINE
  18. LANTUS [Concomitant]
     Active Substance: INSULIN GLARGINE
  19. LOMOTIL [Concomitant]
     Active Substance: ATROPINE SULFATE\DIPHENOXYLATE HYDROCHLORIDE
  20. DILAUDID [Concomitant]
     Active Substance: HYDROMORPHONE HYDROCHLORIDE
  21. LORAZEPAM. [Concomitant]
     Active Substance: LORAZEPAM
  22. CABOMETYX [Suspect]
     Active Substance: CABOZANTINIB S-MALATE
     Dosage: 40 MG, QD (2 TABLETS OF 20 MG FOR NEXT 1 WEEK)
     Route: 048
     Dates: start: 201807, end: 201807
  23. LEVOTHYROXINE. [Concomitant]
     Active Substance: LEVOTHYROXINE

REACTIONS (1)
  - Ill-defined disorder [Unknown]
